FAERS Safety Report 6032625-4 (Version None)
Quarter: 2009Q1

REPORT INFORMATION
  Report Type: 
  Country: None (occurrence: None)
  Receive Date: 20090109
  Receipt Date: 20081230
  Transmission Date: 20090719
  Serious: Yes (Other)
  Sender: FDA-Public Use
  Company Number: DE-WYE-H07531909

PATIENT

DRUGS (1)
  1. CORDAREX [Suspect]
     Dosage: NOT PROVIDED

REACTIONS (1)
  - LUNG DISORDER [None]
